FAERS Safety Report 7946747-1 (Version None)
Quarter: 2011Q4

REPORT INFORMATION
  Report Type: 
  Country: None (occurrence: None)
  Receive Date: 20111129
  Receipt Date: 20111125
  Transmission Date: 20120403
  Serious: Yes (Death, Other)
  Sender: FDA-Public Use
  Company Number: PHFR2011GB03041

PATIENT
  Sex: Male

DRUGS (3)
  1. CLOZARIL [Suspect]
     Indication: SCHIZOPHRENIA
     Route: 048
     Dates: start: 20080204
  2. DIAZEPAM [Suspect]
     Dosage: 10 MG/DAY
     Route: 048
  3. METHADONE HYDROCHLORIDE [Suspect]

REACTIONS (4)
  - OVERDOSE [None]
  - CIRCULATORY COLLAPSE [None]
  - GENERAL PHYSICAL CONDITION ABNORMAL [None]
  - CHRONIC OBSTRUCTIVE PULMONARY DISEASE [None]
